FAERS Safety Report 16991070 (Version 1)
Quarter: 2019Q4

REPORT INFORMATION
  Report Type: Report from Study
  Country: None (occurrence: US)
  Receive Date: 20191104
  Receipt Date: 20191104
  Transmission Date: 20200122
  Serious: Yes (Other)
  Sender: FDA-Public Use
  Company Number: US-ABBVIE-19P-163-2989933-00

PATIENT
  Age: 79 Year
  Sex: Female

DRUGS (1)
  1. SKYRIZI [Suspect]
     Active Substance: RISANKIZUMAB-RZAA
     Indication: PSORIASIS
     Dosage: 150MG WK 4 THEN WK 12
     Route: 058
     Dates: start: 201906

REACTIONS (2)
  - Cataract [Unknown]
  - Cataract [Unknown]

NARRATIVE: CASE EVENT DATE: 20190923
